FAERS Safety Report 13341899 (Version 1)
Quarter: 2017Q1

REPORT INFORMATION
  Report Type: Spontaneous
  Country: SK (occurrence: SK)
  Receive Date: 20170316
  Receipt Date: 20170316
  Transmission Date: 20170428
  Serious: Yes (Hospitalization)
  Sender: FDA-Public Use
  Company Number: SK-NOVOPROD-535689

PATIENT
  Age: 46 Year
  Sex: Female
  Weight: 75 kg

DRUGS (4)
  1. CITALOPRAM [Concomitant]
     Active Substance: CITALOPRAM HYDROBROMIDE
     Indication: ANXIETY DISORDER
     Dosage: 20 MG, QD
     Route: 048
  2. ESTROFEM [Suspect]
     Active Substance: ESTRADIOL CYPIONATE
     Indication: HYSTEROSALPINGO-OOPHORECTOMY
     Dosage: 1 MG, QD
     Route: 048
     Dates: start: 20170208, end: 20170208
  3. NOVALGIN [Suspect]
     Active Substance: METAMIZOLE SODIUM
     Indication: HEADACHE
     Dosage: 500 MG, UNK
     Route: 048
     Dates: start: 20170209, end: 20170209
  4. SULPIRID [Concomitant]
     Active Substance: SULPIRIDE
     Indication: DEPRESSION
     Dosage: 50 MG, QD

REACTIONS (3)
  - Urticaria [Recovered/Resolved]
  - Erythrosis [Recovered/Resolved]
  - Face oedema [Recovered/Resolved]

NARRATIVE: CASE EVENT DATE: 20170209
